FAERS Safety Report 6477421-9 (Version None)
Quarter: 2009Q4

REPORT INFORMATION
  Report Type: 
  Country: None (occurrence: None)
  Receive Date: 20091207
  Receipt Date: 20091123
  Transmission Date: 20100525
  Serious: Yes (Death)
  Sender: FDA-Public Use
  Company Number: US-SANOFI-AVENTIS-200919570US

PATIENT
  Age: 80 Year
  Sex: Female

DRUGS (2)
  1. LOVENOX [Suspect]
     Indication: PULMONARY EMBOLISM
     Dosage: DOSE: UNK
  2. AVONEX [Suspect]
     Dosage: DOSE: UNK
     Route: 065

REACTIONS (1)
  - CARDIAC ARREST [None]
